FAERS Safety Report 5378412-1 (Version None)
Quarter: 2007Q3

REPORT INFORMATION
  Report Type: 
  Country: None (occurrence: None)
  Receive Date: 20070702
  Receipt Date: 20070702
  Transmission Date: 20080115
  Serious: No
  Sender: FDA-Public Use
  Company Number: None

PATIENT
  Age: 62 Year
  Sex: Male

DRUGS (1)
  1. CITALOPRAM [Suspect]
     Dosage: 40MG EVERY DAY PO
     Route: 048
     Dates: start: 20070321, end: 20070502

REACTIONS (1)
  - ANGIOEDEMA [None]
